FAERS Safety Report 7042848-3 (Version None)
Quarter: 2010Q4

REPORT INFORMATION
  Report Type: 
  Country: None (occurrence: None)
  Receive Date: 20101013
  Receipt Date: 20100712
  Transmission Date: 20110411
  Serious: No
  Sender: FDA-Public Use
  Company Number: US-ASTRAZENECA-2010SE32421

PATIENT
  Age: 960 Month
  Sex: Female
  Weight: 68.9 kg

DRUGS (1)
  1. SYMBICORT [Suspect]
     Indication: ASTHMA
     Dosage: 2 PUFFS BID
     Route: 055
     Dates: start: 20090601

REACTIONS (4)
  - DRUG DOSE OMISSION [None]
  - GALLBLADDER DISORDER [None]
  - PALPITATIONS [None]
  - WEIGHT DECREASED [None]
